FAERS Safety Report 8023960-9 (Version None)
Quarter: 2011Q4

REPORT INFORMATION
  Report Type: 
  Country: None (occurrence: None)
  Receive Date: 20111230
  Receipt Date: 20111220
  Transmission Date: 20120403
  Serious: Yes (Hospitalization)
  Sender: FDA-Public Use
  Company Number: JPI-P-018850

PATIENT
  Age: 73 Year
  Sex: Male

DRUGS (1)
  1. XYREM [Suspect]
     Indication: SLEEP DISORDER
     Dosage: 4 GM (2 GM, 2 IN 1 D), ORAL
     Route: 048
     Dates: start: 20041126

REACTIONS (10)
  - MUSCLE SPASMS [None]
  - HERNIA [None]
  - PROSTATOMEGALY [None]
  - POLLAKIURIA [None]
  - DEHYDRATION [None]
  - MIDDLE INSOMNIA [None]
  - FATIGUE [None]
  - LOSS OF CONTROL OF LEGS [None]
  - INTENTIONAL DRUG MISUSE [None]
  - DRUG DOSE OMISSION [None]
